FAERS Safety Report 5526339-4 (Version None)
Quarter: 2007Q4

REPORT INFORMATION
  Report Type: 
  Country: None (occurrence: None)
  Receive Date: 20071127
  Receipt Date: 20071116
  Transmission Date: 20080405
  Serious: Yes (Other)
  Sender: FDA-Public Use
  Company Number: SE-NOVOPROD-268306

PATIENT
  Age: 65 Year
  Sex: Male
  Weight: 76 kg

DRUGS (14)
  1. NOVOLOG MIX 70/30 [Suspect]
     Indication: DIABETES MELLITUS
     Dosage: 28 IU, QD
     Dates: start: 20060524
  2. NOVOLOG MIX 70/30 [Suspect]
     Dosage: 26 IU, UNK
     Dates: start: 20061208
  3. LIPITOR [Concomitant]
     Indication: DRUG USE FOR UNKNOWN INDICATION
     Dosage: 10 MG, QD
     Dates: start: 20051128
  4. ALLOPURINOL [Concomitant]
     Indication: DRUG USE FOR UNKNOWN INDICATION
     Dosage: 200 MG, QD
     Dates: start: 20061205
  5. ENALAPRIL MALEATE [Concomitant]
     Indication: DRUG USE FOR UNKNOWN INDICATION
     Dosage: 5 MG, QD
     Dates: start: 20051128
  6. PANTOLOC                           /01263201/ [Concomitant]
     Indication: DRUG USE FOR UNKNOWN INDICATION
     Dosage: 20 MG, QD
     Dates: start: 20061205
  7. IMPUGAN [Concomitant]
     Indication: DRUG USE FOR UNKNOWN INDICATION
     Dosage: 80 MG, QD
     Dates: start: 20060907
  8. CARVEDILOL [Concomitant]
     Indication: DRUG USE FOR UNKNOWN INDICATION
     Dosage: 50 MG, QD
     Dates: start: 20061205
  9. ALVEDON [Concomitant]
     Dates: start: 20070801
  10. PEVARYL                            /00418501/ [Concomitant]
     Route: 061
     Dates: start: 20070803
  11. ETALPHA                            /00318501/ [Concomitant]
     Dosage: 25 MG, UNK
     Dates: start: 20070614
  12. IMOVANE [Concomitant]
     Dosage: 5 MG, UNK
     Dates: start: 20061204
  13. TROMBYL [Concomitant]
     Dosage: 75 MG, UNK
     Dates: start: 20051205
  14. RENITEC                            /00574901/ [Concomitant]
     Dosage: 5 MG, UNK
     Dates: start: 20061205

REACTIONS (2)
  - ELECTROCARDIOGRAM ABNORMAL [None]
  - HYPOGLYCAEMIA [None]
